FAERS Safety Report 6510679-6 (Version None)
Quarter: 2009Q4

REPORT INFORMATION
  Report Type: 
  Country: None (occurrence: None)
  Receive Date: 20091222
  Receipt Date: 20091019
  Transmission Date: 20100525
  Serious: No
  Sender: FDA-Public Use
  Company Number: US-ASTRAZENECA-2009SE20910

PATIENT
  Sex: Female

DRUGS (5)
  1. CRESTOR [Suspect]
     Route: 048
     Dates: start: 20090701
  2. SYNTHROID [Concomitant]
  3. DILANTIN [Concomitant]
  4. ENALAPRIL MALEATE [Concomitant]
  5. GEMFIBROZIL [Concomitant]

REACTIONS (2)
  - THYROID NEOPLASM [None]
  - WEIGHT INCREASED [None]
